FAERS Safety Report 4468408-6 (Version None)
Quarter: 2004Q4

REPORT INFORMATION
  Report Type: 
  Country: None (occurrence: None)
  Receive Date: 20041007
  Receipt Date: 20040928
  Transmission Date: 20050328
  Serious: Yes (Death, Hospitalization)
  Sender: FDA-Public Use
  Company Number: FR-BRISTOL-MYERS SQUIBB COMPANY-12714705

PATIENT
  Age: 36 Year
  Sex: Male
  Weight: 93 kg

DRUGS (6)
  1. BICNU [Suspect]
     Indication: OLIGODENDROGLIOMA
     Route: 042
     Dates: start: 20040616, end: 20040811
  2. TEMODAL [Suspect]
     Indication: OLIGODENDROGLIOMA
     Route: 048
     Dates: start: 20040616, end: 20040726
  3. RADIATION THERAPY [Suspect]
     Indication: OLIGODENDROGLIOMA
     Dates: end: 20040811
  4. SOLUPRED [Suspect]
     Indication: PROPHYLAXIS
     Route: 048
     Dates: start: 20031101, end: 20040801
  5. MOPRAL [Concomitant]
     Indication: PROPHYLAXIS
     Route: 048
     Dates: start: 20031101, end: 20040801
  6. TRILEPTAL [Concomitant]
     Indication: EPILEPSY
     Route: 048
     Dates: start: 20031101, end: 20040801

REACTIONS (5)
  - ACUTE RESPIRATORY DISTRESS SYNDROME [None]
  - ANAEMIA [None]
  - CYTOMEGALOVIRUS INFECTION [None]
  - LUNG DISORDER [None]
  - NEUTROPENIA [None]
